FAERS Safety Report 7180545-4 (Version None)
Quarter: 2010Q4

REPORT INFORMATION
  Report Type: 
  Country: None (occurrence: None)
  Receive Date: 20101221
  Receipt Date: 20101215
  Transmission Date: 20110411
  Serious: Yes (Hospitalization, Other)
  Sender: FDA-Public Use
  Company Number: GB-PFIZER INC-2010173331

PATIENT
  Age: 43 Year
  Sex: Female

DRUGS (5)
  1. EPANUTIN [Suspect]
     Dosage: 300 MG, AT NIGHT
  2. RIVASTIGMINE [Concomitant]
     Dosage: 9.5 MG PATCH, 1X/DAY
  3. ARIPIPRAZOLE [Concomitant]
     Dosage: 15 MG, 1X/DAY
  4. LEVETIRACETAM [Concomitant]
     Dosage: 1000 MG, 2X/DAY
  5. PHENOBARBITONE [Concomitant]
     Dosage: 30 MG, 2X/DAY

REACTIONS (2)
  - ANTICONVULSANT DRUG LEVEL DECREASED [None]
  - CONVULSION [None]
